FAERS Safety Report 17259914 (Version 1)
Quarter: 2020Q1

REPORT INFORMATION
  Report Type: Spontaneous
  Country: IT (occurrence: IT)
  Receive Date: 20200111
  Receipt Date: 20200111
  Transmission Date: 20200409
  Serious: Yes (Hospitalization)
  Sender: FDA-Public Use
  Company Number: IT-TEVA-2020-IT-1164710

PATIENT
  Age: 78 Year
  Sex: Male

DRUGS (6)
  1. LUVION 100 MG CAPSULE RIGIDE (CANRENOIC ACID) [Suspect]
     Active Substance: CANRENOIC ACID
     Indication: HYPERTENSION
     Route: 048
     Dates: start: 20190101, end: 20190524
  2. AMLODIPINA  PFIZER  ITALIA [Concomitant]
  3. BISOPROLOLO ACTAVIS [Concomitant]
     Active Substance: BISOPROLOL FUMARATE
  4. RAMIPRIL. [Suspect]
     Active Substance: RAMIPRIL
     Indication: HYPERTENSION
     Dosage: 5 MILLIGRAM
     Route: 048
     Dates: start: 20190101, end: 20190524
  5. LASIX [Suspect]
     Active Substance: FUROSEMIDE
     Indication: HYPERTENSION
     Route: 048
     Dates: start: 20190101, end: 20190524
  6. CLEXANE [Concomitant]
     Active Substance: ENOXAPARIN SODIUM

REACTIONS (2)
  - Hyponatraemia [Recovering/Resolving]
  - Hypokalaemia [Recovering/Resolving]

NARRATIVE: CASE EVENT DATE: 20190524
